FAERS Safety Report 9861737 (Version 1)
Quarter: 2014Q1

REPORT INFORMATION
  Report Type: Spontaneous
  Country: US (occurrence: None)
  Receive Date: 20140131
  Receipt Date: 20140131
  Transmission Date: 20141002
  Serious: No
  Sender: FDA-Public Use
  Company Number: None

PATIENT
  Sex: Male

DRUGS (1)
  1. HUMIRA 40MG ABBVIE [Suspect]
     Indication: COLITIS ULCERATIVE
     Route: 058
     Dates: start: 20140106

REACTIONS (1)
  - Drug specific antibody present [None]
